FAERS Safety Report 5959728-4 (Version None)
Quarter: 2008Q4

REPORT INFORMATION
  Report Type: 
  Country: None (occurrence: None)
  Receive Date: 20081119
  Receipt Date: 20081119
  Transmission Date: 20090506
  Serious: Yes (Life-Threatening)
  Sender: FDA-Public Use
  Company Number: None

PATIENT
  Age: 60 Year
  Sex: Female

DRUGS (6)
  1. MORPHINE [Suspect]
     Indication: PROCEDURAL PAIN
     Dosage: 0/2/15 PCA
     Dates: start: 20081015
  2. ASPIRIN [Concomitant]
  3. BISACODYL [Concomitant]
  4. CEFAZOLIN [Concomitant]
  5. DOCUSATE [Concomitant]
  6. ESCITALOPRAM [Concomitant]

REACTIONS (2)
  - OXYGEN SATURATION DECREASED [None]
  - UNRESPONSIVE TO STIMULI [None]
